FAERS Safety Report 19748019 (Version 2)
Quarter: 2021Q3

REPORT INFORMATION
  Report Type: Spontaneous
  Country: US (occurrence: US)
  Receive Date: 20210826
  Receipt Date: 20210901
  Transmission Date: 20211014
  Serious: No
  Sender: FDA-Public Use
  Company Number: US-JNJFOC-20210826645

PATIENT
  Sex: Male

DRUGS (1)
  1. TREMFYA [Suspect]
     Active Substance: GUSELKUMAB
     Indication: OSTEOARTHRITIS
     Dosage: FIRST DOSE
     Route: 065

REACTIONS (3)
  - Drug delivery system malfunction [Unknown]
  - Off label use [Unknown]
  - Product use in unapproved indication [Unknown]
